FAERS Safety Report 19939614 (Version 3)
Quarter: 2022Q1

REPORT INFORMATION
  Report Type: Spontaneous
  Country: FR (occurrence: FR)
  Receive Date: 20211011
  Receipt Date: 20220314
  Transmission Date: 20220423
  Serious: Yes (Hospitalization)
  Sender: FDA-Public Use
  Company Number: None

PATIENT
  Age: 42 Year
  Sex: Male

DRUGS (12)
  1. XANAX [Suspect]
     Active Substance: ALPRAZOLAM
     Dosage: 2 TO 4 MG, DAILY
     Route: 048
     Dates: start: 2015, end: 2017
  2. TRIMEPRAZINE [Suspect]
     Active Substance: TRIMEPRAZINE
     Dosage: UNK
     Route: 048
     Dates: start: 20200928, end: 20200928
  3. SUBUTEX [Suspect]
     Active Substance: BUPRENORPHINE HYDROCHLORIDE
     Dosage: UNK
  4. COCAINE [Suspect]
     Active Substance: COCAINE
     Dosage: 3 G, ONCE A DAY
     Route: 055
     Dates: start: 202001
  5. COCAINE [Suspect]
     Active Substance: COCAINE
     Dosage: 1 G, ONCE A DAY
     Route: 045
     Dates: start: 2010, end: 202001
  6. CANNABIS SATIVA SUBSP. INDICA TOP [Suspect]
     Active Substance: CANNABIS SATIVA SUBSP. INDICA TOP
     Dosage: 2 TO 5 JOINTS DAILY
     Route: 048
     Dates: start: 1993
  7. OXAZEPAM [Suspect]
     Active Substance: OXAZEPAM
     Dosage: UNTIL 150 MG DAILY
     Route: 048
  8. MIDOMAFETAMINE [Suspect]
     Active Substance: MIDOMAFETAMINE
     Dosage: UNTIL 8 TABLETS DAILY
     Route: 048
  9. NICOTINE [Suspect]
     Active Substance: NICOTINE
     Dosage: UNTIL 10 CIGARETS DAILY
     Route: 055
     Dates: start: 1993
  10. LYSERGIDE [Suspect]
     Active Substance: LYSERGIDE
     Dosage: UNK
  11. HEROIN [Suspect]
     Active Substance: DIAMORPHINE
     Dosage: UNK
  12. ALCOHOL [Concomitant]
     Active Substance: ALCOHOL
     Dosage: 16-22 GLASSES DAILY
     Route: 048
     Dates: start: 1993

REACTIONS (8)
  - Toxicity to various agents [Recovered/Resolved]
  - Drug dependence [Not Recovered/Not Resolved]
  - Depression [Not Recovered/Not Resolved]
  - Paraesthesia [Recovering/Resolving]
  - Drug abuse [Not Recovered/Not Resolved]
  - Nausea [Recovering/Resolving]
  - Muscle spasms [Recovering/Resolving]
  - Suicidal ideation [Recovering/Resolving]

NARRATIVE: CASE EVENT DATE: 19930301
